FAERS Safety Report 6101047-X (Version None)
Quarter: 2009Q1

REPORT INFORMATION
  Report Type: 
  Country: None (occurrence: None)
  Receive Date: 20090304
  Receipt Date: 20090225
  Transmission Date: 20090719
  Serious: Yes (Life-Threatening)
  Sender: FDA-Public Use
  Company Number: JP-ELI_LILLY_AND_COMPANY-JP200902001172

PATIENT
  Sex: Female

DRUGS (10)
  1. RALOXIFENE HYDROCHLORIDE [Suspect]
     Indication: OSTEOPOROSIS POSTMENOPAUSAL
     Dosage: 60 MG, DAILY (1/D)
     Route: 048
     Dates: start: 20050521, end: 20070821
  2. RINLAXER [Concomitant]
     Indication: SPINAL OSTEOARTHRITIS
     Dosage: 750 MG, DAILY (1/D)
     Route: 048
     Dates: start: 20051031, end: 20060811
  3. RINLAXER [Concomitant]
     Dosage: 500 MG, DAILY (1/D)
     Route: 048
     Dates: start: 20060812, end: 20080229
  4. OMEPRAL [Concomitant]
     Indication: GASTRIC ULCER
     Dosage: 20 MG, DAILY (1/D)
     Route: 048
     Dates: start: 20051031
  5. HYPEN [Concomitant]
     Indication: SPINAL OSTEOARTHRITIS
     Dosage: 400 MG, DAILY (1/D)
     Route: 048
     Dates: start: 20051031
  6. NEUROTROPIN [Concomitant]
     Indication: SPINAL OSTEOARTHRITIS
     Dosage: 16 IU, DAILY (1/D)
     Route: 048
     Dates: start: 20051031
  7. DIAZEPAM [Concomitant]
     Indication: ANXIETY DISORDER
     Dosage: 4 MG, DAILY (1/D)
     Route: 048
     Dates: start: 20051228
  8. MOHRUS [Concomitant]
     Indication: SPINAL OSTEOARTHRITIS
     Dosage: 1 D/F, DAILY (1/D)
     Route: 062
     Dates: start: 20060812
  9. MYSLEE [Concomitant]
     Indication: INSOMNIA
     Dosage: 5 MG, DAILY (1/D)
     Route: 048
     Dates: start: 20060812
  10. MUCOSTA [Concomitant]
     Indication: GASTRIC ULCER
     Dosage: 200 MG, DAILY (1/D)
     Route: 048
     Dates: start: 20070310

REACTIONS (1)
  - BREAST CANCER [None]
